FAERS Safety Report 5862764-X (Version None)
Quarter: 2008Q3

REPORT INFORMATION
  Report Type: 
  Country: None (occurrence: None)
  Receive Date: 20080827
  Receipt Date: 20080827
  Transmission Date: 20090109
  Serious: Yes (Hospitalization)
  Sender: FDA-Public Use
  Company Number: None

PATIENT
  Age: 84 Year
  Sex: Male
  Weight: 93.9 kg

DRUGS (1)
  1. TIGECYCLINE [Suspect]
     Indication: INFECTION
     Dosage: 50 MG BID IV
     Route: 042
     Dates: start: 20080728, end: 20080805

REACTIONS (1)
  - PANCREATITIS [None]
